FAERS Safety Report 16973144 (Version 1)
Quarter: 2019Q4

REPORT INFORMATION
  Report Type: Spontaneous
  Country: US (occurrence: US)
  Receive Date: 20191030
  Receipt Date: 20191030
  Transmission Date: 20200122
  Serious: No
  Sender: FDA-Public Use
  Company Number: US-TEVA-2019-US-1129095

PATIENT
  Age: 5 Year

DRUGS (1)
  1. HYDROXOCOBALAMIN INJ [Suspect]
     Active Substance: HYDROXOCOBALAMIN
     Indication: VITAMIN B12 DEFICIENCY
     Dosage: .3 MILLIGRAM DAILY; DOSE STRENGTH: 1000 MCG/ML
     Route: 058
     Dates: start: 2016

REACTIONS (1)
  - Chromaturia [Unknown]

NARRATIVE: CASE EVENT DATE: 2018
